FAERS Safety Report 11286093 (Version 3)
Quarter: 2016Q2

REPORT INFORMATION
  Report Type: Report from Study
  Country: CA (occurrence: CA)
  Receive Date: 20150721
  Receipt Date: 20160428
  Transmission Date: 20160815
  Serious: Yes (Hospitalization, Other)
  Sender: FDA-Public Use
  Company Number: CA-ROCHE-1589905

PATIENT
  Age: 41 Year
  Sex: Female

DRUGS (17)
  1. XARELTO [Concomitant]
     Active Substance: RIVAROXABAN
  2. VENTOLIN [Concomitant]
     Active Substance: ALBUTEROL SULFATE
  3. SEPTRA [Suspect]
     Active Substance: SULFAMETHOXAZOLE\TRIMETHOPRIM
     Indication: PRODUCT USED FOR UNKNOWN INDICATION
     Route: 065
  4. LASIX [Concomitant]
     Active Substance: FUROSEMIDE
  5. SYMBICORT [Concomitant]
     Active Substance: BUDESONIDE\FORMOTEROL FUMARATE DIHYDRATE
  6. ZOPICLONE [Concomitant]
     Active Substance: ZOPICLONE
  7. DAPSONE. [Suspect]
     Active Substance: DAPSONE
     Indication: PRODUCT USED FOR UNKNOWN INDICATION
     Route: 065
  8. DIGOXIN. [Concomitant]
     Active Substance: DIGOXIN
  9. ACETAMINOPHEN. [Concomitant]
     Active Substance: ACETAMINOPHEN
     Indication: PREMEDICATION
     Route: 048
     Dates: start: 20120718
  10. RITUXAN [Suspect]
     Active Substance: RITUXIMAB
     Indication: GRANULOMATOSIS WITH POLYANGIITIS
     Dosage: FREQUENCY: DAY 1, 15
     Route: 042
     Dates: start: 20120718
  11. METHYLPREDNISOLONE. [Concomitant]
     Active Substance: METHYLPREDNISOLONE
     Indication: PREMEDICATION
     Route: 042
     Dates: start: 20120718
  12. RAMIPRIL. [Concomitant]
     Active Substance: RAMIPRIL
  13. ASPIRIN. [Concomitant]
     Active Substance: ASPIRIN
  14. METOPROLOL. [Concomitant]
     Active Substance: METOPROLOL
  15. PREDNISONE. [Concomitant]
     Active Substance: PREDNISONE
  16. DIPHENHYDRAMINE HCL [Concomitant]
     Active Substance: DIPHENHYDRAMINE HYDROCHLORIDE
     Indication: PREMEDICATION
     Route: 048
     Dates: start: 20120718
  17. PANTOLOC [Concomitant]
     Active Substance: PANTOPRAZOLE SODIUM

REACTIONS (9)
  - Coagulopathy [Unknown]
  - Haemorrhage [Recovering/Resolving]
  - Pancreatitis [Unknown]
  - Cystitis [Unknown]
  - Hypersensitivity [Recovered/Resolved]
  - Drug intolerance [Unknown]
  - Cardiac failure [Not Recovered/Not Resolved]
  - Bladder irritation [Unknown]
  - Drug intolerance [Unknown]

NARRATIVE: CASE EVENT DATE: 201409
